FAERS Safety Report 6888267-1 (Version None)
Quarter: 2010Q3

REPORT INFORMATION
  Report Type: 
  Country: None (occurrence: None)
  Receive Date: 20100727
  Receipt Date: 20100717
  Transmission Date: 20110219
  Serious: Yes (Hospitalization)
  Sender: FDA-Public Use
  Company Number: GER/GER/10/0012724

PATIENT
  Age: 45 Year
  Sex: Female
  Weight: 90 kg

DRUGS (4)
  1. AMITRIPTYLIN BETA 25 (AMITRIPTYLINE) HCL [Suspect]
     Indication: PRODUCT USED FOR UNKNOWN INDICATION
     Dosage: 25 MG, 10 IN 1 TOTAL, ORAL
     Route: 048
  2. VENLAFAXINE [Suspect]
     Indication: PRODUCT USED FOR UNKNOWN INDICATION
     Dosage: 150 MG, 10 IN 1 TOTAL, ORAL
     Route: 048
  3. IBUPROFEN [Suspect]
     Indication: PRODUCT USED FOR UNKNOWN INDICATION
     Dosage: 400 MG, 10 IN 1 TOTAL, ORAL
     Route: 048
  4. DICLOFENAC 50 (DICLOFENAC) [Suspect]
     Indication: PRODUCT USED FOR UNKNOWN INDICATION
     Dosage: 450 MG, 10 IN 1 TOTAL, ORAL
     Route: 048

REACTIONS (8)
  - AGITATION [None]
  - BLOOD POTASSIUM DECREASED [None]
  - CONVULSION [None]
  - DELIRIUM [None]
  - HYPOGLYCAEMIA [None]
  - MULTIPLE DRUG OVERDOSE INTENTIONAL [None]
  - NYSTAGMUS [None]
  - TACHYCARDIA [None]
